FAERS Safety Report 20010042 (Version 2)
Quarter: 2021Q4

REPORT INFORMATION
  Report Type: Spontaneous
  Country: FR (occurrence: FR)
  Receive Date: 20211028
  Receipt Date: 20211103
  Transmission Date: 20220303
  Serious: Yes (Other)
  Sender: FDA-Public Use
  Company Number: FR-ABBVIE-21K-056-4135155-00

PATIENT
  Sex: Male

DRUGS (17)
  1. VALPROATE SODIUM [Suspect]
     Active Substance: VALPROATE SODIUM
     Indication: Product administration error
     Route: 048
     Dates: start: 20190510, end: 20190510
  2. ALPRAZOLAM [Suspect]
     Active Substance: ALPRAZOLAM
     Indication: Product administration error
     Route: 048
     Dates: start: 20190510, end: 20190510
  3. OLANZAPINE [Suspect]
     Active Substance: OLANZAPINE
     Indication: Product administration error
     Route: 048
     Dates: start: 20190510, end: 20190510
  4. ARTANE [Suspect]
     Active Substance: TRIHEXYPHENIDYL HYDROCHLORIDE
     Indication: Product administration error
     Route: 048
     Dates: start: 20190510, end: 20190510
  5. PHLOROGLUCINOL [Suspect]
     Active Substance: PHLOROGLUCINOL
     Indication: Product administration error
     Route: 048
     Dates: start: 20190510, end: 20190510
  6. CYAMEMAZINE [Suspect]
     Active Substance: CYAMEMAZINE
     Indication: Product administration error
     Route: 048
     Dates: start: 20190510, end: 20190510
  7. AMIODARONE HYDROCHLORIDE [Suspect]
     Active Substance: AMIODARONE HYDROCHLORIDE
     Indication: Product administration error
     Route: 048
     Dates: start: 20190510, end: 20190510
  8. ANETHOLTRITHION [Suspect]
     Active Substance: ANETHOLTRITHION
     Indication: Product administration error
     Route: 048
     Dates: start: 20190510, end: 20190510
  9. PHLOROGLUCINOL [Suspect]
     Active Substance: PHLOROGLUCINOL
     Indication: Product administration error
     Route: 048
  10. BIOTIN [Suspect]
     Active Substance: BIOTIN
     Indication: Product administration error
     Route: 048
  11. CYANOCOBALAMIN [Suspect]
     Active Substance: CYANOCOBALAMIN
     Indication: Product administration error
     Route: 048
  12. CHOLINE [Suspect]
     Active Substance: CHOLINE
     Indication: Product administration error
     Route: 048
  13. CALCIUM PANTOTHENATE [Suspect]
     Active Substance: CALCIUM PANTOTHENATE
     Indication: Product administration error
     Route: 048
  14. FOLIC ACID [Suspect]
     Active Substance: FOLIC ACID
     Indication: Product administration error
     Route: 048
  15. NICOTINAMIDE [Suspect]
     Active Substance: NIACINAMIDE
     Indication: Product administration error
     Route: 048
  16. PYRIDOXINE [Suspect]
     Active Substance: PYRIDOXINE
     Indication: Product administration error
     Route: 048
  17. THIAMINE HYDROCHLORIDE [Suspect]
     Active Substance: THIAMINE HYDROCHLORIDE
     Indication: Product administration error
     Route: 048

REACTIONS (6)
  - Haemodynamic instability [Recovered/Resolved]
  - Wrong patient received product [Recovered/Resolved]
  - Product administration error [Recovered/Resolved]
  - Circumstance or information capable of leading to medication error [Recovered/Resolved]
  - Hypotension [Recovered/Resolved]
  - Tachycardia [Recovered/Resolved]

NARRATIVE: CASE EVENT DATE: 20190510
